FAERS Safety Report 6856485-4 (Version None)
Quarter: 2010Q3

REPORT INFORMATION
  Report Type: 
  Country: None (occurrence: None)
  Receive Date: 20100716
  Receipt Date: 20100716
  Transmission Date: 20110219
  Serious: Yes (Hospitalization, Other)
  Sender: FDA-Public Use
  Company Number: None

PATIENT
  Sex: Female
  Weight: 87.9978 kg

DRUGS (2)
  1. MULTAQ [Suspect]
     Indication: ATRIAL FIBRILLATION
     Dosage: 400 MG BID PO
     Route: 048
     Dates: start: 20100505, end: 20100607
  2. MULTAQ [Suspect]
     Indication: TREATMENT FAILURE
     Dosage: 400 MG BID PO
     Route: 048
     Dates: start: 20100505, end: 20100607

REACTIONS (3)
  - CARDIAC FAILURE [None]
  - NO THERAPEUTIC RESPONSE [None]
  - WEIGHT INCREASED [None]
